FAERS Safety Report 9180487 (Version 1)
Quarter: 2013Q1

REPORT INFORMATION
  Report Type: Spontaneous
  Country: BR (occurrence: BR)
  Receive Date: 20130322
  Receipt Date: 20130322
  Transmission Date: 20140127
  Serious: Yes (Other)
  Sender: FDA-Public Use
  Company Number: BR-AMGEN-BRASP2013012310

PATIENT
  Age: 45 Year
  Sex: Female
  Weight: 53 kg

DRUGS (2)
  1. ENBREL [Suspect]
     Indication: PSORIASIS
     Dosage: 25 MG, 2X/WEEK
     Route: 058
     Dates: start: 200710
  2. PONSTAN [Concomitant]
     Indication: PAIN
     Dosage: UNK, IF PAIN

REACTIONS (2)
  - Pulpitis dental [Not Recovered/Not Resolved]
  - Thyroid disorder [Unknown]
